FAERS Safety Report 5502046-9 (Version None)
Quarter: 2007Q4

REPORT INFORMATION
  Report Type: 
  Country: None (occurrence: None)
  Receive Date: 20071030
  Receipt Date: 20070301
  Transmission Date: 20080405
  Serious: No
  Sender: FDA-Public Use
  Company Number: A0641511A

PATIENT
  Age: 52 Year
  Sex: Female

DRUGS (4)
  1. IMITREX [Suspect]
     Indication: MIGRAINE
     Dosage: 20MG AS REQUIRED
     Route: 045
     Dates: start: 20070201
  2. ELAVIL [Concomitant]
  3. FOSAMAX [Concomitant]
  4. TAPAZOLE [Concomitant]

REACTIONS (1)
  - DRUG INEFFECTIVE [None]
